FAERS Safety Report 25658505 (Version 1)
Quarter: 2025Q3

REPORT INFORMATION
  Report Type: Spontaneous
  Country: US (occurrence: US)
  Receive Date: 20250808
  Receipt Date: 20250808
  Transmission Date: 20251021
  Serious: Yes (Other)
  Sender: ACCORD
  Company Number: US-Accord-498536

PATIENT
  Age: 17 Year
  Sex: Female

DRUGS (4)
  1. CISPLATIN [Suspect]
     Active Substance: CISPLATIN
     Indication: Pancreatoblastoma
  2. FLUOROURACIL [Concomitant]
     Active Substance: FLUOROURACIL
     Indication: Pancreatoblastoma
  3. VINCRISTINE [Concomitant]
     Active Substance: VINCRISTINE
     Indication: Pancreatoblastoma
  4. DOXORUBICIN [Concomitant]
     Active Substance: DOXORUBICIN
     Indication: Pancreatoblastoma

REACTIONS (2)
  - Off label use [Unknown]
  - Fanconi syndrome [Unknown]
